FAERS Safety Report 8486273-7 (Version None)
Quarter: 2012Q3

REPORT INFORMATION
  Report Type: 
  Country: None (occurrence: None)
  Receive Date: 20120703
  Receipt Date: 20120628
  Transmission Date: 20120928
  Serious: Yes (Hospitalization)
  Sender: FDA-Public Use
  Company Number: BE-AMGEN-BELCT2012004976

PATIENT
  Age: 39 Year
  Sex: Female
  Weight: 75 kg

DRUGS (25)
  1. SOLU-MEDROL [Concomitant]
     Route: 042
     Dates: start: 20111207, end: 20120208
  2. EPIRUBICIN [Concomitant]
     Indication: BREAST CANCER
     Dosage: 100 MG/M2, Q3WK
     Route: 042
     Dates: start: 20111207
  3. NOVABAN [Concomitant]
     Dosage: 5 MG, UNK
     Route: 042
     Dates: start: 20111207, end: 20120208
  4. DEXAMETHASONE SODIUM PHOSPHATE [Concomitant]
     Route: 048
     Dates: start: 20111208, end: 20120503
  5. CETIRIZINE [Concomitant]
     Dosage: 10 MG, UNK
     Route: 048
     Dates: start: 20111231, end: 20120401
  6. EMEND [Concomitant]
     Dosage: UNK
     Route: 048
     Dates: start: 20111207, end: 20120210
  7. ZOLPIDEM TATRATE [Concomitant]
     Route: 048
     Dates: start: 20111208
  8. LEVOFLOXACIN [Concomitant]
     Dosage: 500 MG, UNK
     Route: 048
     Dates: start: 20111209, end: 20111213
  9. CALCIUMCARBONAAT [Concomitant]
     Route: 048
     Dates: start: 20111207
  10. FLUOROURACIL [Concomitant]
     Indication: BREAST CANCER
     Dosage: 600 MG/M2, Q3WK
     Route: 042
     Dates: start: 20111207
  11. CYCLOPHOSPHAMIDE [Concomitant]
     Indication: BREAST CANCER
     Dosage: 600 MG/M2, Q3WK
     Route: 042
     Dates: start: 20111207
  12. CALCIUM CARBONATE [Concomitant]
     Route: 048
     Dates: start: 20111207
  13. VIT D3 [Concomitant]
     Dosage: UNK
     Route: 048
     Dates: start: 20111207
  14. DENOSUMAB [Suspect]
     Indication: BREAST CANCER
     Dosage: UNK, Q3WK
     Route: 058
     Dates: start: 20111207
  15. NEULASTA [Concomitant]
     Dosage: 6 MG, Q3WK
     Route: 058
     Dates: start: 20111228, end: 20120208
  16. LITICAN [Concomitant]
     Dates: start: 20111207, end: 20120213
  17. MEDROL [Concomitant]
     Route: 048
     Dates: start: 20111231, end: 20111231
  18. PANTOPRAZOLE [Concomitant]
     Dosage: UNK
     Route: 048
     Dates: start: 20111209, end: 20120331
  19. SOLU-MEDROL [Concomitant]
     Dosage: 80 MG, UNK
     Dates: start: 20111207, end: 20120208
  20. ZOLPIDEM [Concomitant]
     Dosage: 10 MG, QD
     Route: 048
     Dates: start: 20111208
  21. AUGMENTIN '125' [Concomitant]
     Dosage: UNK
     Route: 042
     Dates: start: 20111208, end: 20111209
  22. RIOPAN [Concomitant]
     Route: 048
     Dates: start: 20111209, end: 20111228
  23. BETAHISTINE [Concomitant]
     Route: 048
     Dates: start: 20030615
  24. DIFLUCAN [Concomitant]
     Route: 048
     Dates: start: 20111207
  25. TRAMADOL HCL [Concomitant]
     Route: 048
     Dates: start: 20111125

REACTIONS (1)
  - PAIN OF SKIN [None]
